FAERS Safety Report 20725298 (Version 2)
Quarter: 2022Q2

REPORT INFORMATION
  Report Type: Spontaneous
  Country: JP (occurrence: JP)
  Receive Date: 20220419
  Receipt Date: 20220502
  Transmission Date: 20220721
  Serious: No
  Sender: FDA-Public Use
  Company Number: JP-PFIZER INC-202200528135

PATIENT
  Age: 55 Year
  Sex: Female
  Weight: 57.65 kg

DRUGS (4)
  1. PAXLOVID [Suspect]
     Active Substance: NIRMATRELVIR\RITONAVIR
     Indication: COVID-19 treatment
     Dosage: 300MG + 100MG (AS REPORTED)
     Route: 048
     Dates: start: 20220308, end: 20220309
  2. ACETAMINOPHEN [Concomitant]
     Active Substance: ACETAMINOPHEN
  3. URSODIOL [Concomitant]
     Active Substance: URSODIOL
  4. MAGNESIUM OXIDE [Concomitant]
     Active Substance: MAGNESIUM OXIDE

REACTIONS (1)
  - Rash [Recovering/Resolving]

NARRATIVE: CASE EVENT DATE: 20220309
